FAERS Safety Report 11761439 (Version 1)
Quarter: 2015Q4

REPORT INFORMATION
  Report Type: Spontaneous
  Country: US (occurrence: US)
  Receive Date: 20151120
  Receipt Date: 20151120
  Transmission Date: 20160304
  Serious: No
  Sender: FDA-Public Use
  Company Number: US-ELI_LILLY_AND_COMPANY-US201301000107

PATIENT
  Age: 59 Year
  Sex: Female

DRUGS (1)
  1. FORTEO [Suspect]
     Active Substance: TERIPARATIDE
     Indication: SPINAL FRACTURE
     Dosage: UNK

REACTIONS (6)
  - Fear [Unknown]
  - Alopecia [Unknown]
  - Headache [Unknown]
  - Injection site bruising [Unknown]
  - Off label use [Unknown]
  - Intentional product misuse [Unknown]
